FAERS Safety Report 8575716-6 (Version None)
Quarter: 2012Q3

REPORT INFORMATION
  Report Type: 
  Country: None (occurrence: None)
  Receive Date: 20120807
  Receipt Date: 20120803
  Transmission Date: 20120928
  Serious: Yes (Hospitalization)
  Sender: FDA-Public Use
  Company Number: PHHY2012AU053619

PATIENT
  Sex: Male
  Weight: 120 kg

DRUGS (9)
  1. METFORMIN HYDROCHLORIDE [Concomitant]
     Dosage: 1000 MG, BID
  2. DIAMICRON MR [Concomitant]
     Dosage: 60MG, TWO TABLETS EVERY MORNING
  3. SIMVASTATIN [Concomitant]
     Dosage: 40 MG, ONCE NIGHTLY
  4. SERETIDE [Concomitant]
  5. FUROSEMIDE [Concomitant]
     Dosage: 2 DF, (40 MG) BID
  6. ASPIRIN [Concomitant]
     Dosage: 60 MG, PRN
  7. XALATAN [Concomitant]
  8. ZOLEDRONOC ACID [Suspect]
     Indication: OSTEITIS DEFORMANS
     Dosage: 5 MG, UNK
     Route: 042
     Dates: start: 20110704
  9. SPIRIVA [Concomitant]

REACTIONS (8)
  - VISUAL ACUITY TESTS ABNORMAL [None]
  - C-REACTIVE PROTEIN INCREASED [None]
  - PAIN [None]
  - BLOOD UREA INCREASED [None]
  - BLOOD CREATININE INCREASED [None]
  - GLOMERULAR FILTRATION RATE DECREASED [None]
  - CARDIAC FAILURE CONGESTIVE [None]
  - DYSPNOEA [None]
